FAERS Safety Report 8304131-5 (Version None)
Quarter: 2012Q2

REPORT INFORMATION
  Report Type: 
  Country: None (occurrence: None)
  Receive Date: 20120423
  Receipt Date: 20120419
  Transmission Date: 20120825
  Serious: No
  Sender: FDA-Public Use
  Company Number: US-PFIZER INC-2012098570

PATIENT
  Sex: Female
  Weight: 70.295 kg

DRUGS (3)
  1. CHANTIX [Suspect]
     Dosage: UNK
     Dates: start: 20120401
  2. CHANTIX [Suspect]
     Indication: SMOKING CESSATION THERAPY
     Dosage: 0.5 MG, DAILY
     Dates: start: 20120411, end: 20120401
  3. MULTI-VITAMINS [Concomitant]
     Dosage: UNK

REACTIONS (2)
  - ANXIETY [None]
  - TOBACCO WITHDRAWAL SYMPTOMS [None]
